FAERS Safety Report 8816478 (Version 2)
Quarter: 2012Q4

REPORT INFORMATION
  Report Type: Spontaneous
  Country: US (occurrence: None)
  Receive Date: 20120927
  Receipt Date: 20121016
  Transmission Date: 20130627
  Serious: Yes (Hospitalization, Other)
  Sender: FDA-Public Use
  Company Number: IPC201209-000515

PATIENT
  Age: 81 Year
  Sex: Male

DRUGS (7)
  1. FUROSEMIDE [Suspect]
     Dates: start: 201206
  2. CLOPIDOGREL BISULFATE [Suspect]
     Route: 048
     Dates: start: 201206
  3. AMIODARONE [Suspect]
     Dosage: 200 mg ^for 5 days, off on the weekends^
     Dates: start: 201206
  4. METFORMIN [Suspect]
  5. INSULIN (INSULIN) (INSULIN) [Concomitant]
  6. LANTUS (LANTUS) (LANTUS) [Concomitant]
  7. GLIPIZIDE (GLIPIZIDE) (GLIPIZIDE) [Concomitant]

REACTIONS (8)
  - Myocardial infarction [None]
  - Intestinal haemorrhage [None]
  - Thrombosis [None]
  - Oedema peripheral [None]
  - Haemoglobin decreased [None]
  - Haematocrit decreased [None]
  - Constipation [None]
  - Renal disorder [None]
